FAERS Safety Report 6718590-2 (Version None)
Quarter: 2010Q2

REPORT INFORMATION
  Report Type: 
  Country: None (occurrence: None)
  Receive Date: 20100503
  Receipt Date: 20100420
  Transmission Date: 20101027
  Serious: Yes (Death, Hospitalization)
  Sender: FDA-Public Use
  Company Number: 2009AC000029

PATIENT
  Age: 49 Year
  Sex: Male

DRUGS (66)
  1. DIGOXIN [Suspect]
     Indication: DRUG USE FOR UNKNOWN INDICATION
     Dosage: 0.125 MG, PO
     Route: 048
     Dates: start: 20050301
  2. DIGOXIN [Suspect]
     Indication: DRUG USE FOR UNKNOWN INDICATION
     Dosage: .25 MG, QD; PO
     Route: 048
     Dates: start: 20060101
  3. DIGOXIN [Suspect]
     Indication: DRUG USE FOR UNKNOWN INDICATION
     Dosage: .25 MG, QD; PO
     Route: 048
     Dates: start: 20060401
  4. LOPRESSOR [Concomitant]
  5. AMIODARONE [Concomitant]
  6. LASIX [Concomitant]
  7. LISINOPRIL [Concomitant]
  8. DIOVAN [Concomitant]
  9. SPIRONOLACTONE [Concomitant]
  10. COREG [Concomitant]
  11. POTASSIUM [Concomitant]
  12. HYDROCODONE BITARTRATE [Concomitant]
  13. COUMADIN [Concomitant]
  14. ADVAIR DISKUS 100/50 [Concomitant]
  15. ............ [Concomitant]
  16. POTASSIUM CHLORIDE [Concomitant]
  17. FUROSEMIDE [Concomitant]
  18. CYCLOBENZAPRINE [Concomitant]
  19. ............ [Concomitant]
  20. ADIPEX [Concomitant]
  21. PONDIMIN [Concomitant]
  22. FENPHEN [Concomitant]
  23. SELDANE [Concomitant]
  24. PSEUDOEPINEPHRINE [Concomitant]
  25. VANCENASE [Concomitant]
  26. ZESTORETIC [Concomitant]
  27. BRETHAIRE [Concomitant]
  28. SUDAFED 12 HOUR [Concomitant]
  29. ASPIRIN [Concomitant]
  30. IBUPROFEN [Concomitant]
  31. ALBUTEROL [Concomitant]
  32. ORUVAIL [Concomitant]
  33. ALLEGRA [Concomitant]
  34. NASONEX [Concomitant]
  35. METFORMIN HYDROCHLORIDE [Concomitant]
  36. WELLBUTRIN [Concomitant]
  37. ETODOLAC [Concomitant]
  38. CELEBREX [Concomitant]
  39. NEXIUM [Concomitant]
  40. DOPAMINE HCL [Concomitant]
  41. ENOXAPARIN SODIUM [Concomitant]
  42. ATROPINE [Concomitant]
  43. EPINEPHRINE [Concomitant]
  44. NEO-SYNEPHRINOL [Concomitant]
  45. FENTANYL [Concomitant]
  46. VERSED [Concomitant]
  47. GLYBURIDE [Concomitant]
  48. INSULIN [Concomitant]
  49. LORATADINE [Concomitant]
  50. PANTOPRAZOLE [Concomitant]
  51. BUSPIRONE HCL [Concomitant]
  52. NARCAN [Concomitant]
  53. ROMAZION [Concomitant]
  54. HALDOL [Concomitant]
  55. MEDROXYPROGESTERONE [Concomitant]
  56. THEOPHYLLINE [Concomitant]
  57. VANCOMYCIN [Concomitant]
  58. PREDNISONE [Concomitant]
  59. LINEZOLID [Concomitant]
  60. PROPOXYPHENE [Concomitant]
  61. XOPENEX [Concomitant]
  62. SOLU-MEDROL [Concomitant]
  63. KAYEXALATE [Concomitant]
  64. LEVOFLOXACIN [Concomitant]
  65. HEPARIN [Concomitant]
  66. DIGOXIN [Suspect]
     Indication: DRUG USE FOR UNKNOWN INDICATION
     Dosage: .375MG QD;PO
     Route: 048
     Dates: start: 20060301

REACTIONS (58)
  - ABDOMINAL DISTENSION [None]
  - AGITATION [None]
  - AMNESIA [None]
  - ANAEMIA [None]
  - ARRHYTHMIA [None]
  - ATELECTASIS [None]
  - ATRIAL FLUTTER [None]
  - BLOOD PRESSURE DECREASED [None]
  - BRADYCARDIA [None]
  - CARDIAC ARREST [None]
  - CARDIAC FAILURE CONGESTIVE [None]
  - CARDIOACTIVE DRUG LEVEL DECREASED [None]
  - CARDIOMYOPATHY [None]
  - CHRONIC OBSTRUCTIVE PULMONARY DISEASE [None]
  - COMA [None]
  - CONDITION AGGRAVATED [None]
  - CONFUSIONAL STATE [None]
  - CORONARY ARTERY DISEASE [None]
  - DEEP VEIN THROMBOSIS [None]
  - DEHYDRATION [None]
  - DIABETES MELLITUS [None]
  - DISORIENTATION [None]
  - DYSARTHRIA [None]
  - DYSURIA [None]
  - EJECTION FRACTION DECREASED [None]
  - ELECTROCARDIOGRAM ST SEGMENT ABNORMAL [None]
  - ELECTROCARDIOGRAM ST-T SEGMENT ABNORMAL [None]
  - FLUID OVERLOAD [None]
  - GASTROINTESTINAL HAEMORRHAGE [None]
  - GENERALISED OEDEMA [None]
  - HYPERCAPNIA [None]
  - HYPERGLYCAEMIA [None]
  - HYPERTENSION [None]
  - HYPOAESTHESIA [None]
  - HYPOTENSION [None]
  - INTERMITTENT CLAUDICATION [None]
  - LETHARGY [None]
  - LUNG CONSOLIDATION [None]
  - METABOLIC SYNDROME [None]
  - ORTHOPNOEA [None]
  - PLEURAL EFFUSION [None]
  - PNEUMONIA [None]
  - RASH [None]
  - RENAL FAILURE [None]
  - RESPIRATORY FAILURE [None]
  - SLEEP APNOEA SYNDROME [None]
  - SOMNOLENCE [None]
  - STAPHYLOCOCCUS TEST POSITIVE [None]
  - TACHYCARDIA [None]
  - TREATMENT FAILURE [None]
  - TREATMENT NONCOMPLIANCE [None]
  - UNRESPONSIVE TO STIMULI [None]
  - VENOUS INSUFFICIENCY [None]
  - VENTRICULAR FIBRILLATION [None]
  - VENTRICULAR TACHYCARDIA [None]
  - VIRAL INFECTION [None]
  - VISUAL IMPAIRMENT [None]
  - WEIGHT INCREASED [None]
